FAERS Safety Report 5126776-6 (Version None)
Quarter: 2006Q4

REPORT INFORMATION
  Report Type: 
  Country: None (occurrence: None)
  Receive Date: 20061010
  Receipt Date: 20061003
  Transmission Date: 20070319
  Serious: Yes (Death, Life-Threatening)
  Sender: FDA-Public Use
  Company Number: 163-20785-0608167

PATIENT
  Age: 43 Year
  Sex: Male

DRUGS (4)
  1. THALOMID (THALIDOMIDE) (100 MILLIGRAM, CASPSULES) [Suspect]
     Indication: MULTIPLE MYELOMA
     Dosage: 100 MG, 1 IN 1 D, ORAL
     Route: 048
     Dates: start: 20050826
  2. DECADRON [Suspect]
     Indication: MULTIPLE MYELOMA
     Dosage: HIGH DOSE
  3. TOPROL-XL [Concomitant]
  4. CLONIDINE [Concomitant]

REACTIONS (3)
  - BRAIN ABSCESS [None]
  - BRAIN HERNIATION [None]
  - BRAIN OEDEMA [None]
